FAERS Safety Report 17473488 (Version 1)
Quarter: 2020Q1

REPORT INFORMATION
  Report Type: Report from Study
  Country: US (occurrence: US)
  Receive Date: 20200228
  Receipt Date: 20200228
  Transmission Date: 20200409
  Serious: Yes (Other)
  Sender: FDA-Public Use
  Company Number: US-JNJFOC-20190614289

PATIENT
  Sex: Female
  Weight: 82.17 kg

DRUGS (1)
  1. STELARA [Suspect]
     Active Substance: USTEKINUMAB
     Indication: PSORIATIC ARTHROPATHY
     Route: 058
     Dates: start: 20190204

REACTIONS (4)
  - Psoriasis [Recovering/Resolving]
  - Arthralgia [Recovered/Resolved]
  - Syncope [Unknown]
  - Hypotension [Unknown]
